FAERS Safety Report 9805665 (Version 4)
Quarter: 2014Q3

REPORT INFORMATION
  Report Type: Spontaneous
  Country: US (occurrence: US)
  Receive Date: 20140109
  Receipt Date: 20140922
  Transmission Date: 20150326
  Serious: Yes (Hospitalization, Other)
  Sender: FDA-Public Use
  Company Number: US-BAYER-2014-001476

PATIENT
  Age: 30 Year
  Sex: Female

DRUGS (2)
  1. MIRENA [Suspect]
     Active Substance: LEVONORGESTREL
     Indication: CONTRACEPTION
     Dosage: 20 MCG/24HR, CONT
     Route: 015
     Dates: start: 20060331, end: 201202
  2. ZOLOFT [Concomitant]
     Active Substance: SERTRALINE HYDROCHLORIDE
     Indication: ANXIETY

REACTIONS (22)
  - Uterine perforation [None]
  - Injury [None]
  - Pain [None]
  - Anhedonia [None]
  - Hormone level abnormal [None]
  - Fear of death [None]
  - Depression [Not Recovered/Not Resolved]
  - Device issue [None]
  - Infection [None]
  - Deformity [None]
  - Emotional distress [None]
  - Drug ineffective [None]
  - Anxiety [None]
  - Pregnancy with contraceptive device [None]
  - Device misuse [None]
  - Gastrointestinal injury [None]
  - Disability [None]
  - Scar [None]
  - Organ failure [None]
  - Abdominal pain [None]
  - General physical health deterioration [None]
  - Dyspareunia [None]

NARRATIVE: CASE EVENT DATE: 201202
